FAERS Safety Report 10365770 (Version 1)
Quarter: 2014Q3

REPORT INFORMATION
  Report Type: Spontaneous
  Country: FR (occurrence: FR)
  Receive Date: 20140806
  Receipt Date: 20140806
  Transmission Date: 20150326
  Serious: Yes (Death)
  Sender: FDA-Public Use
  Company Number: FR-PFIZER INC-2014217165

PATIENT
  Sex: Male
  Weight: 64.5 kg

DRUGS (1)
  1. SUTENT [Suspect]
     Active Substance: SUNITINIB MALATE
     Indication: RENAL CANCER METASTATIC
     Dosage: 37.5 MG PER DAY CYCLIC (4 WEEKS ON, 2 WEEK OFF)
     Dates: start: 20120921, end: 20130131

REACTIONS (1)
  - Death [Fatal]

NARRATIVE: CASE EVENT DATE: 20131105
